FAERS Safety Report 6854113-5 (Version None)
Quarter: 2010Q3

REPORT INFORMATION
  Report Type: 
  Country: None (occurrence: None)
  Receive Date: 20100717
  Receipt Date: 20071228
  Transmission Date: 20110219
  Serious: No
  Sender: FDA-Public Use
  Company Number: US-PFIZER INC-2008000507

PATIENT
  Sex: Male
  Weight: 78.181 kg

DRUGS (6)
  1. CHANTIX [Interacting]
     Indication: SMOKING CESSATION THERAPY
     Dates: start: 20071225
  2. OXYCONTIN [Suspect]
     Indication: PAIN
  3. ACCUPRIL [Concomitant]
  4. ATENOLOL [Concomitant]
  5. TRIMETON [Concomitant]
  6. TIZANIDINE HCL [Concomitant]

REACTIONS (1)
  - DRUG INTERACTION [None]
